FAERS Safety Report 5141447-8 (Version None)
Quarter: 2006Q4

REPORT INFORMATION
  Report Type: 
  Country: None (occurrence: None)
  Receive Date: 20061030
  Receipt Date: 20061030
  Transmission Date: 20070319
  Serious: Yes (Other)
  Sender: FDA-Public Use
  Company Number: None

PATIENT
  Sex: Female
  Weight: 84.7319 kg

DRUGS (4)
  1. ANGIOMAX [Suspect]
     Indication: ANTIPLATELET THERAPY
     Dosage: 12.75 CC BOLUS / 30 CC IV INFUS
     Route: 040
     Dates: start: 20060808, end: 20060808
  2. ANGIOMAX [Suspect]
     Indication: PERCUTANEOUS CORONARY INTERVENTION
     Dosage: 12.75 CC BOLUS / 30 CC IV INFUS
     Route: 040
     Dates: start: 20060808, end: 20060808
  3. PLAVIX [Suspect]
     Indication: ANTIPLATELET THERAPY
     Dosage: 600, 75 LOADING, MAINT PO
     Route: 048
     Dates: start: 20060808, end: 20060913
  4. PLAVIX [Suspect]
     Indication: PERCUTANEOUS CORONARY INTERVENTION
     Dosage: 600, 75 LOADING, MAINT PO
     Route: 048
     Dates: start: 20060808, end: 20060913

REACTIONS (2)
  - REOCCLUSION [None]
  - STENT PLACEMENT [None]
